FAERS Safety Report 13927812 (Version 3)
Quarter: 2017Q3

REPORT INFORMATION
  Report Type: Spontaneous
  Country: AU (occurrence: AU)
  Receive Date: 20170831
  Receipt Date: 20170919
  Transmission Date: 20171127
  Serious: Yes (Hospitalization, Other)
  Sender: FDA-Public Use
  Company Number: AU-BAXTER-2017BAX030899

PATIENT
  Age: 49 Year
  Sex: Male
  Weight: 87.3 kg

DRUGS (1)
  1. EXTRANEAL [Suspect]
     Active Substance: CALCIUM CHLORIDE\ICODEXTRIN\MAGNESIUM CHLORIDE\SODIUM CHLORIDE\SODIUM LACTATE
     Indication: PERITONEAL DIALYSIS
     Route: 033
     Dates: start: 20140724, end: 20170720

REACTIONS (5)
  - Product contamination microbial [Unknown]
  - Fungal infection [Recovered/Resolved]
  - Device related infection [Recovered/Resolved]
  - Fungal peritonitis [Recovered/Resolved with Sequelae]
  - Peritonitis bacterial [Recovered/Resolved]

NARRATIVE: CASE EVENT DATE: 2017
